FAERS Safety Report 6240239-6 (Version None)
Quarter: 2009Q2

REPORT INFORMATION
  Report Type: 
  Country: None (occurrence: None)
  Receive Date: 20090623
  Receipt Date: 20080429
  Transmission Date: 20091009
  Serious: Yes (Hospitalization)
  Sender: FDA-Public Use
  Company Number: US-ASTRAZENECA-2008UW08709

PATIENT
  Age: 9 Month
  Sex: Male

DRUGS (3)
  1. PULMICORT RESPULES [Suspect]
     Indication: ASTHMA
     Dosage: .25 MG/ML BID
     Route: 055
  2. XOPENEX [Concomitant]
  3. CLARITIN [Concomitant]

REACTIONS (2)
  - BRONCHOSPASM [None]
  - COUGH [None]
